FAERS Safety Report 6372169-3 (Version None)
Quarter: 2009Q3

REPORT INFORMATION
  Report Type: 
  Country: None (occurrence: None)
  Receive Date: 20090917
  Receipt Date: 20090904
  Transmission Date: 20100115
  Serious: Yes (Other)
  Sender: FDA-Public Use
  Company Number: ADR19352009 (ARROW GENERICS LOG NO.: AG3937)

PATIENT
  Age: 54 Year
  Sex: Male

DRUGS (46)
  1. SALBUTAMOL (MFR: UNKNOWN) [Suspect]
  2. SIMVASTATIN [Suspect]
     Dosage: 40 MG (4/1 DAY)
  3. ACTRAPID [Concomitant]
  4. ALFENTANIL [Concomitant]
  5. AMOXICILLIN [Concomitant]
  6. AQUASEPT [Concomitant]
  7. BACTROBAN [Concomitant]
  8. CALCIUM CHLORIDE [Concomitant]
  9. CALCIUM GLUCONATE [Concomitant]
  10. CEFTRIAXONE [Concomitant]
  11. CLEXANE [Concomitant]
  12. DOBUTAMINE HCL [Concomitant]
  13. FLUCONAZOLE [Concomitant]
  14. FRAGMIN [Concomitant]
  15. FUROSEMIDE [Concomitant]
  16. HYDROCORTISONE [Concomitant]
  17. LACTULOSE [Concomitant]
  18. LANSOPRAZOLE [Concomitant]
  19. LOREZEPAM [Concomitant]
  20. MAGNESIUM SULFATE [Concomitant]
  21. .. [Concomitant]
  22. NORADRENALINE [Concomitant]
  23. OMPEPRAZOLE [Concomitant]
  24. PARACETAMOL [Concomitant]
  25. POTASSIUM CHLORIDE [Concomitant]
  26. PIRITON [Concomitant]
  27. POTASSIUM PHOSPHATES [Concomitant]
  28. PROPOFOL [Concomitant]
  29. SANDO K [Concomitant]
  30. SILVER SULFADIAZINE [Concomitant]
  31. SODIUM BICARBONATE IN PLASTIC CONTAINER [Concomitant]
  32. SODIUM CHLORIDE [Concomitant]
  33. THIAMINE HCL [Concomitant]
  34. TINZAPARIN [Concomitant]
  35. VITAMIN K [Concomitant]
  36. ASPIRIN [Concomitant]
  37. ATROVENT [Concomitant]
  38. CIPROFLOXACIN HYDROCHLORIDE [Concomitant]
  39. CO-AMOICLAV [Concomitant]
  40. ERYTHROMYCIN [Concomitant]
  41. MIDORDRINE [Concomitant]
  42. PANTOPRAZOLE SODIUM [Concomitant]
  43. TAZOCIN [Concomitant]
  44. VANCOMYIN [Concomitant]
  45. ZOPICLONE [Concomitant]
  46. METOCLOPRAMIDE [Concomitant]

REACTIONS (1)
  - TOXIC EPIDERMAL NECROLYSIS [None]
